FAERS Safety Report 6942206-3 (Version None)
Quarter: 2010Q3

REPORT INFORMATION
  Report Type: 
  Country: None (occurrence: None)
  Receive Date: 20100820
  Receipt Date: 20100811
  Transmission Date: 20110219
  Serious: Yes (Other)
  Sender: FDA-Public Use
  Company Number: 2010US002895

PATIENT
  Age: 87 Year
  Sex: Male

DRUGS (5)
  1. VESICARE [Suspect]
     Indication: HYPERTONIC BLADDER
     Dosage: 5 MG, D, ORAL
     Route: 048
     Dates: start: 20100101, end: 20100701
  2. PLAVIX [Concomitant]
  3. METFORMIN HCL [Concomitant]
  4. VITAMIN D NOS (VITAMIN D NOS) [Concomitant]
  5. MULTIVITAMIN [Concomitant]

REACTIONS (2)
  - NEUROLOGICAL SYMPTOM [None]
  - PARKINSON'S DISEASE [None]
